FAERS Safety Report 16095470 (Version 3)
Quarter: 2019Q2

REPORT INFORMATION
  Report Type: Report from Study
  Country: FR (occurrence: FR)
  Receive Date: 20190320
  Receipt Date: 20190405
  Transmission Date: 20190711
  Serious: Yes (Other)
  Sender: FDA-Public Use
  Company Number: PHHY2019FR062820

PATIENT
  Age: 72 Year
  Sex: Male

DRUGS (1)
  1. ENTRESTO [Suspect]
     Active Substance: SACUBITRIL\VALSARTAN
     Indication: PRODUCT USED FOR UNKNOWN INDICATION
     Dosage: UNK
     Route: 065

REACTIONS (10)
  - Peripheral swelling [Unknown]
  - Ejection fraction decreased [Unknown]
  - Ageusia [Unknown]
  - Abdominal pain upper [Unknown]
  - Gastrointestinal disorder [Unknown]
  - N-terminal prohormone brain natriuretic peptide increased [Unknown]
  - Joint swelling [Unknown]
  - Decreased appetite [Unknown]
  - Depressed mood [Unknown]
  - Sleep disorder [Unknown]
